FAERS Safety Report 18818600 (Version 2)
Quarter: 2021Q1

REPORT INFORMATION
  Report Type: Spontaneous
  Country: JP (occurrence: JP)
  Receive Date: 20210202
  Receipt Date: 20210301
  Transmission Date: 20210419
  Serious: Yes (Hospitalization)
  Sender: FDA-Public Use
  Company Number: JP-MTPC-MTPC2021-0002776

PATIENT
  Age: 87 Year
  Sex: Female

DRUGS (2)
  1. RADICUT INJ. 30MG [Suspect]
     Active Substance: EDARAVONE
     Dosage: UNK
     Route: 041
     Dates: start: 20201218
  2. FOIPAN [Concomitant]
     Active Substance: CAMOSTAT MESYLATE
     Route: 048

REACTIONS (1)
  - Pancreatitis [Unknown]

NARRATIVE: CASE EVENT DATE: 20201221
